FAERS Safety Report 21106340 (Version 2)
Quarter: 2022Q3

REPORT INFORMATION
  Report Type: Report from Study
  Country: ES (occurrence: ES)
  Receive Date: 20220720
  Receipt Date: 20220729
  Transmission Date: 20221027
  Serious: Yes (Other)
  Sender: FDA-Public Use
  Company Number: ES-DECIPHERA PHARMACEUTICALS LLC-2022ES000587

PATIENT
  Sex: Female

DRUGS (1)
  1. RIPRETINIB [Suspect]
     Active Substance: RIPRETINIB
     Indication: Product used for unknown indication
     Dosage: UNK
     Dates: start: 20210727, end: 20220212

REACTIONS (1)
  - Tumour perforation [Unknown]
